FAERS Safety Report 14473555 (Version 1)
Quarter: 2018Q1

REPORT INFORMATION
  Report Type: Spontaneous
  Country: US (occurrence: US)
  Receive Date: 20180201
  Receipt Date: 20180201
  Transmission Date: 20180509
  Serious: No
  Sender: FDA-Public Use
  Company Number: US-APOTEX-2017AP018553

PATIENT
  Age: 32 Year
  Sex: Female

DRUGS (4)
  1. CIMETIDINE TABLETS USP [Suspect]
     Active Substance: CIMETIDINE
     Indication: SKIN PAPILLOMA
     Dosage: 800 MG, BID
     Route: 048
  2. SALICYLIC ACID. [Suspect]
     Active Substance: SALICYLIC ACID
     Indication: SKIN PAPILLOMA
     Route: 065
  3. IMIQUIMOD. [Suspect]
     Active Substance: IMIQUIMOD
     Indication: SKIN PAPILLOMA
     Dosage: UNK, QD
     Route: 065
  4. NITROGEN, LIQUID [Suspect]
     Active Substance: NITROGEN
     Indication: SKIN PAPILLOMA
     Route: 065

REACTIONS (2)
  - Drug ineffective for unapproved indication [Unknown]
  - Abdominal discomfort [Unknown]
